FAERS Safety Report 8614159-3 (Version None)
Quarter: 2012Q3

REPORT INFORMATION
  Report Type: 
  Country: None (occurrence: None)
  Receive Date: 20120823
  Receipt Date: 20120815
  Transmission Date: 20120928
  Serious: Yes (Other)
  Sender: FDA-Public Use
  Company Number: BR-JNJFOC-20120808928

PATIENT
  Age: 83 Year
  Sex: Female
  Weight: 60 kg

DRUGS (5)
  1. HALOPERIDOL LACTATE [Suspect]
     Route: 048
     Dates: start: 20070101, end: 20100101
  2. LOSARTAN POTASSIUM [Suspect]
     Indication: HYPERTENSION
     Route: 065
     Dates: start: 20070101, end: 20120801
  3. HALOPERIDOL LACTATE [Suspect]
     Indication: DEMENTIA ALZHEIMER'S TYPE
     Dosage: ONE TABLET/NIGHT
     Route: 048
     Dates: start: 20100101
  4. HYGROTON [Suspect]
     Indication: BLOOD PRESSURE
     Route: 065
     Dates: start: 20070101, end: 20120801
  5. ^BLOOD PRESSURE^ MEDICATION [Suspect]
     Indication: BLOOD PRESSURE
     Route: 065
     Dates: start: 20070101, end: 20120801

REACTIONS (5)
  - SYNCOPE [None]
  - AGITATION [None]
  - THERAPEUTIC RESPONSE UNEXPECTED [None]
  - INSOMNIA [None]
  - EYE PRURITUS [None]
